FAERS Safety Report 10715641 (Version 1)
Quarter: 2015Q1

REPORT INFORMATION
  Report Type: Spontaneous
  Country: US (occurrence: None)
  Receive Date: 20150105
  Receipt Date: 20150105
  Transmission Date: 20150721
  Serious: Yes (Other)
  Sender: FDA-Public Use
  Company Number: 2013AP008959

PATIENT
  Age: 75 Year
  Sex: Female
  Weight: 108.4 kg

DRUGS (8)
  1. LISINOPRIL. [Concomitant]
     Active Substance: LISINOPRIL
  2. GLIPIZIDE. [Concomitant]
     Active Substance: GLIPIZIDE
  3. LIPITOR [Concomitant]
     Active Substance: ATORVASTATIN CALCIUM
  4. AMLODINE [Concomitant]
     Active Substance: AMLODIPINE BESYLATE
  5. GLIPIZIDE (GLIPIZIDE) TABLET [Suspect]
     Active Substance: GLIPIZIDE
     Indication: DIABETES MELLITUS
  6. METFORMIN [Concomitant]
     Active Substance: METFORMIN HYDROCHLORIDE
  7. INSULIN [Concomitant]
     Active Substance: INSULIN NOS
  8. BENICAR [Concomitant]
     Active Substance: OLMESARTAN MEDOXOMIL

REACTIONS (1)
  - Hypersensitivity [None]
